FAERS Safety Report 21661881 (Version 3)
Quarter: 2023Q2

REPORT INFORMATION
  Report Type: Spontaneous
  Country: BR (occurrence: BR)
  Receive Date: 20221130
  Receipt Date: 20230524
  Transmission Date: 20230721
  Serious: Yes (Other)
  Sender: FDA-Public Use
  Company Number: BR-ABBOTT-2022A-1356270

PATIENT
  Sex: Female

DRUGS (5)
  1. SYNTHROID [Suspect]
     Active Substance: LEVOTHYROXINE SODIUM
     Indication: Hypothyroidism
     Dosage: SHE STARTED WITH ^77^ MCG, THEN 90 OR 100 MCG; PATIENT USES SYNTHROID FOR OVER 10 YEARS
     Route: 048
  2. SYNTHROID [Suspect]
     Active Substance: LEVOTHYROXINE SODIUM
     Indication: Hypothyroidism
     Dosage: STARTED WITH 77 MCG, THEN 90 OR 100 MCG
     Route: 048
  3. SYNTHROID [Suspect]
     Active Substance: LEVOTHYROXINE SODIUM
     Indication: Hypothyroidism
     Dosage: START DATE: AROUND 10 YEARS AGO OR MORE THAN 10 YEARS AGO; DAILY DOSE: 1 TABLET (88 MCG)
     Route: 048
  4. SYNTHROID [Suspect]
     Active Substance: LEVOTHYROXINE SODIUM
     Indication: Hypothyroidism
     Route: 048
  5. COVID-19 VACCINE [Concomitant]
     Indication: COVID-19 prophylaxis
     Dosage: THE PATIENT TOOK THE 4 DOSES OF THE VACCINE AGAINST COVID.
     Route: 030

REACTIONS (5)
  - Colon operation [Unknown]
  - Gastrointestinal disorder [Unknown]
  - Diarrhoea [Recovered/Resolved]
  - COVID-19 [Recovered/Resolved]
  - Lactose intolerance [Unknown]

NARRATIVE: CASE EVENT DATE: 20210101
